FAERS Safety Report 7068875-8 (Version None)
Quarter: 2010Q4

REPORT INFORMATION
  Report Type: 
  Country: None (occurrence: None)
  Receive Date: 20101028
  Receipt Date: 20101019
  Transmission Date: 20110411
  Serious: Yes (Disabling, Other)
  Sender: FDA-Public Use
  Company Number: US-SANOFI-AVENTIS-2010SA061307

PATIENT
  Age: 73 Year
  Sex: Female
  Weight: 79.8 kg

DRUGS (18)
  1. MULTAQ [Suspect]
     Indication: ATRIAL FIBRILLATION
     Route: 048
     Dates: start: 20100902, end: 20100910
  2. MULTAQ [Suspect]
     Route: 048
     Dates: start: 20100902, end: 20100910
  3. MULTAQ [Suspect]
     Route: 048
     Dates: start: 20101001, end: 20101002
  4. CLONIDINE [Concomitant]
     Dates: end: 20100901
  5. CLONIDINE [Concomitant]
     Dates: start: 20100917
  6. ATENOLOL [Concomitant]
  7. FUROSEMIDE [Concomitant]
     Indication: CARDIAC DISORDER
  8. POTASSIUM CHLORIDE [Concomitant]
  9. ZETIA [Concomitant]
  10. TERAZOSIN HCL [Concomitant]
  11. INSULIN [Concomitant]
     Dosage: DOSE:32 UNIT(S)
  12. SINGULAIR [Concomitant]
  13. LISINOPRIL AND HYDROCHLOROTHIAZIDE [Concomitant]
  14. LEVOXYL [Concomitant]
  15. COUMADIN [Concomitant]
     Indication: ATRIAL FIBRILLATION
  16. METFORMIN [Concomitant]
  17. ALBUTEROL [Concomitant]
  18. PREDNISONE [Concomitant]

REACTIONS (4)
  - ABASIA [None]
  - FALL [None]
  - HAND FRACTURE [None]
  - MUSCULAR WEAKNESS [None]
